FAERS Safety Report 14689651 (Version 1)
Quarter: 2018Q1

REPORT INFORMATION
  Report Type: Spontaneous
  Country: FR (occurrence: FR)
  Receive Date: 20180328
  Receipt Date: 20180328
  Transmission Date: 20180509
  Serious: Yes (Other)
  Sender: FDA-Public Use
  Company Number: FR-PFIZER INC-2018123534

PATIENT
  Age: 82 Year
  Sex: Male
  Weight: 70.1 kg

DRUGS (3)
  1. MIANSERINE HCL [Suspect]
     Active Substance: MIANSERIN HYDROCHLORIDE
     Dosage: 30 MG, UNK
     Route: 048
     Dates: end: 20180219
  2. RISPERDAL [Suspect]
     Active Substance: RISPERIDONE
     Indication: AGITATION
     Dosage: 1 DF, UNK
     Route: 048
     Dates: start: 20180110, end: 20180219
  3. AMLOR [Suspect]
     Active Substance: AMLODIPINE BESYLATE
     Dosage: 1 DF, UNK
     Route: 048
     Dates: start: 20180130, end: 20180219

REACTIONS (1)
  - Agranulocytosis [Recovered/Resolved]

NARRATIVE: CASE EVENT DATE: 20180219
